FAERS Safety Report 4747695-0 (Version None)
Quarter: 2005Q3

REPORT INFORMATION
  Report Type: 
  Country: None (occurrence: None)
  Receive Date: 20050818
  Receipt Date: 20050527
  Transmission Date: 20060218
  Serious: Yes (Hospitalization)
  Sender: FDA-Public Use
  Company Number: US-BOEHRINGER INGELHEIM PHARMACEUTICALS, INC.-2005-BP-08847BP

PATIENT
  Sex: Male
  Weight: 77.1 kg

DRUGS (2)
  1. TIPRANAVIR / RITONAVIR CAPSULES [Suspect]
     Indication: HIV INFECTION
     Dosage: 1000 MG/400 MG
     Route: 048
     Dates: start: 20021212
  2. SUSTIVA [Concomitant]
     Indication: HIV INFECTION
     Route: 048
     Dates: start: 20020624

REACTIONS (6)
  - ABDOMINAL PAIN [None]
  - DIVERTICULITIS [None]
  - DIVERTICULUM [None]
  - GIARDIASIS [None]
  - LYMPHOMA [None]
  - PANCREATITIS CHRONIC [None]
